FAERS Safety Report 8778665 (Version 3)
Quarter: 2012Q4

REPORT INFORMATION
  Report Type: 
  Country: US (occurrence: US)
  Receive Date: 20120912
  Receipt Date: 20121108
  Transmission Date: 20130627
  Serious: Yes (Other)
  Sender: FDA-Public Use
  Company Number: US-ABBOTT-12P-163-0976865-00

PATIENT
  Sex: Male
  Weight: 89.89 kg

DRUGS (1)
  1. HUMIRA [Suspect]
     Indication: PSORIASIS
     Route: 058
     Dates: start: 2010

REACTIONS (4)
  - Dupuytren^s contracture [Recovered/Resolved]
  - Joint contracture [Recovered/Resolved]
  - Arthropathy [Recovered/Resolved]
  - Therapeutic response unexpected [Unknown]
